FAERS Safety Report 6021406-3 (Version None)
Quarter: 2008Q4

REPORT INFORMATION
  Report Type: 
  Country: None (occurrence: None)
  Receive Date: 20081229
  Receipt Date: 20081219
  Transmission Date: 20090506
  Serious: Yes (Life-Threatening)
  Sender: FDA-Public Use
  Company Number: B0551687A

PATIENT
  Age: 42 Year
  Sex: Female

DRUGS (8)
  1. TAGAMET [Suspect]
     Indication: DRUG USE FOR UNKNOWN INDICATION
     Route: 048
     Dates: start: 20080701
  2. DIPRIVAN [Suspect]
     Route: 042
     Dates: start: 20080701
  3. CELOCURINE [Suspect]
     Dosage: 120MG PER DAY
     Route: 042
     Dates: start: 20080701
  4. XANAX [Suspect]
     Indication: DRUG USE FOR UNKNOWN INDICATION
     Route: 048
     Dates: start: 20080701
  5. SEVORANE [Suspect]
     Route: 055
     Dates: start: 20080701
  6. ULTIVA [Suspect]
     Route: 042
     Dates: start: 20080701
  7. BIPRETERAX [Suspect]
     Dosage: 4MGL UNKNOWN
     Route: 065
  8. LEVOTHYROX [Suspect]

REACTIONS (6)
  - BLOOD PRESSURE FLUCTUATION [None]
  - BRONCHOSPASM [None]
  - HISTAMINE LEVEL INCREASED [None]
  - HYPOTENSION [None]
  - HYPOXIA [None]
  - TRYPTASE INCREASED [None]
